FAERS Safety Report 5599390-6 (Version None)
Quarter: 2007Q4

REPORT INFORMATION
  Report Type: 
  Country: None (occurrence: None)
  Receive Date: 20071226
  Receipt Date: 20071126
  Transmission Date: 20080405
  Serious: No
  Sender: FDA-Public Use
  Company Number: 2007PV033765

PATIENT
  Age: 38 Year
  Sex: Male

DRUGS (2)
  1. SYMLIN [Suspect]
     Indication: TYPE 2 DIABETES MELLITUS
     Dosage: 60 MCG, SC
     Route: 058
  2. ANTIHYPERTENSIVE [Concomitant]

REACTIONS (1)
  - HYPOAESTHESIA [None]
